FAERS Safety Report 8719450 (Version 3)
Quarter: 2013Q1

REPORT INFORMATION
  Report Type: Report from Study
  Country: JP (occurrence: JP)
  Receive Date: 20120810
  Receipt Date: 20130205
  Transmission Date: 20140127
  Serious: Yes (Hospitalization, Other)
  Sender: FDA-Public Use
  Company Number: JP-009507513-2012SP021993

PATIENT
  Age: 60 Year
  Sex: Male
  Weight: 52 kg

DRUGS (16)
  1. PEGINTRON [Suspect]
     Indication: CHRONIC HEPATITIS C
     Dosage: 0.75 ?G/KG, QW
     Route: 058
     Dates: start: 20120222, end: 20120807
  2. REBETOL [Suspect]
     Indication: CHRONIC HEPATITIS C
     Dosage: 600 MG, QD, CUMULATIVE DOSE: 600 MG
     Route: 048
     Dates: start: 20120222, end: 20120301
  3. REBETOL [Suspect]
     Dosage: 400 MG, QD, CUMULATIVE DOSE: 600 MG
     Route: 048
     Dates: start: 20120302, end: 20120411
  4. REBETOL [Suspect]
     Dosage: 200 MG, QD, CUMULATIVE DOSE: 600MG
     Route: 048
     Dates: start: 20120411, end: 20120425
  5. REBETOL [Suspect]
     Dosage: 200 MG, QD, CUMULATIVE DOSE: 600MG
     Route: 048
     Dates: start: 20120516, end: 20120717
  6. REBETOL [Suspect]
     Dosage: 400 MG, QD, 600MG (CUMULATIVE DOSE)
     Route: 048
     Dates: start: 20120718, end: 20120724
  7. REBETOL [Suspect]
     Dosage: 600 MG, QD, 600MG (CUMULATIVE DOSE)
     Route: 048
     Dates: start: 20120725, end: 20120807
  8. TELAVIC [Suspect]
     Indication: CHRONIC HEPATITIS C
     Dosage: 2250 MG, QD
     Route: 048
     Dates: start: 20120222, end: 20120224
  9. TELAVIC [Suspect]
     Dosage: 1.5 G, QD
     Route: 048
     Dates: start: 20120225
  10. CALONAL [Concomitant]
     Indication: HEPATITIS C
     Dosage: 600MG/DAY, AS NEEDED, FORMULATIO: POR (UNSPECIFIED)
     Route: 048
     Dates: start: 20120222
  11. OLMETEC [Concomitant]
     Indication: HYPERTENSION
     Dosage: 20 MG, QD,
     Route: 048
     Dates: start: 20120222
  12. ALOSITOL [Concomitant]
     Indication: HEPATITIS C
     Dosage: DAILY DOSE UNKNOWN
     Route: 048
     Dates: start: 20120224
  13. ALOSITOL [Concomitant]
     Dosage: 100 MG, UNK
     Route: 048
  14. BERIZYM (ASPERGILLUS ORYZAE EXTRACT (+) CELLULASE (+) LIPASE (+) PANCR [Concomitant]
     Indication: HEPATITIS C
     Dosage: FORMULATION: POR (UNSPECIFIED), DAILY DOSE UNKNOWN
     Route: 048
     Dates: start: 20120309
  15. BIODIASTASE [Concomitant]
     Indication: HEPATITIS C
     Dosage: 3 DF, UNK
     Route: 048
     Dates: start: 20120314
  16. CLARITIN [Concomitant]
     Indication: HEPATITIS C
     Dosage: 10 MG, QD
     Route: 048

REACTIONS (6)
  - Renal disorder [Recovering/Resolving]
  - Hyperuricaemia [Recovered/Resolved]
  - Amylase increased [Recovered/Resolved]
  - Anaemia [Recovering/Resolving]
  - Platelet count decreased [Not Recovered/Not Resolved]
  - Neutrophil count decreased [Not Recovered/Not Resolved]
